FAERS Safety Report 24054324 (Version 1)
Quarter: 2024Q3

REPORT INFORMATION
  Report Type: Spontaneous
  Country: FR (occurrence: None)
  Receive Date: 20240705
  Receipt Date: 20240705
  Transmission Date: 20241017
  Serious: Yes (Hospitalization)
  Sender: ASTRAZENECA
  Company Number: 2024A149391

PATIENT
  Age: 82 Year
  Sex: Male
  Weight: 38 kg

DRUGS (7)
  1. DAPAGLIFLOZIN [Suspect]
     Active Substance: DAPAGLIFLOZIN
     Indication: Cardiac failure
     Route: 048
     Dates: end: 20240212
  2. ALPRAZOLAM [Concomitant]
     Active Substance: ALPRAZOLAM
  3. NEBIVOLOL [Concomitant]
     Active Substance: NEBIVOLOL
  4. GAVISCON [Concomitant]
     Active Substance: ALUMINUM HYDROXIDE\MAGNESIUM CARBONATE
  5. SODIUM CHLORIDE [Concomitant]
     Active Substance: SODIUM CHLORIDE
  6. TRANSIPEG [Concomitant]
  7. IMOVANE [Concomitant]
     Active Substance: ZOPICLONE

REACTIONS (2)
  - Condition aggravated [Recovered/Resolved]
  - Hyponatraemia [Recovered/Resolved]

NARRATIVE: CASE EVENT DATE: 20240202
